FAERS Safety Report 4721673-X (Version None)
Quarter: 2005Q3

REPORT INFORMATION
  Report Type: 
  Country: None (occurrence: None)
  Receive Date: 20050721
  Receipt Date: 20050216
  Transmission Date: 20060218
  Serious: Yes (Other)
  Sender: FDA-Public Use
  Company Number: US-BRISTOL-MYERS SQUIBB COMPANY-12864864

PATIENT
  Age: 7 Decade
  Sex: Female
  Weight: 85 kg

DRUGS (2)
  1. COUMADIN [Suspect]
     Indication: ATRIAL FIBRILLATION
     Dosage: DOSE INCREASED TO 9.5 MG ONCE DAILY
     Route: 048
     Dates: start: 20041101
  2. TOPROL-XL [Concomitant]

REACTIONS (1)
  - INTERNATIONAL NORMALISED RATIO DECREASED [None]
